FAERS Safety Report 16075657 (Version 2)
Quarter: 2019Q3

REPORT INFORMATION
  Report Type: Spontaneous
  Country: JP (occurrence: JP)
  Receive Date: 20190315
  Receipt Date: 20190701
  Transmission Date: 20191004
  Serious: Yes (Hospitalization)
  Sender: FDA-Public Use
  Company Number: JP-SUN PHARMACEUTICAL INDUSTRIES LTD-2019R1-201871

PATIENT
  Age: 60 Year
  Sex: Female

DRUGS (5)
  1. HYDROXYZINE PAMOATE. [Concomitant]
     Active Substance: HYDROXYZINE PAMOATE
     Indication: ANAESTHESIA PROCEDURE
     Dosage: 25 MG
     Route: 042
  2. PENTAZOCINE [Concomitant]
     Active Substance: PENTAZOCINE
     Indication: ANAESTHESIA PROCEDURE
     Dosage: 15 MG
     Route: 042
  3. ASPIRIN. [Concomitant]
     Active Substance: ASPIRIN
     Indication: ANTIPLATELET THERAPY
     Dosage: 100 MILLIGRAM, DAILY
     Route: 065
  4. DEXMEDETOMIDINE. [Suspect]
     Active Substance: DEXMEDETOMIDINE
     Indication: SEDATIVE THERAPY
     Dosage: 0.3 G (AFTER AN INITIAL LOADING OF 5 G FOR 5 MINUTES)
     Route: 065
  5. CLOPIDOGREL [Concomitant]
     Active Substance: CLOPIDOGREL BISULFATE
     Indication: ANTIPLATELET THERAPY
     Dosage: 75 MILLIGRAM, DAILY
     Route: 065

REACTIONS (1)
  - Cardiac arrest [Recovered/Resolved]
